FAERS Safety Report 8341233-1 (Version None)
Quarter: 2012Q2

REPORT INFORMATION
  Report Type: 
  Country: None (occurrence: None)
  Receive Date: 20120507
  Receipt Date: 20120426
  Transmission Date: 20120825
  Serious: Yes (Hospitalization)
  Sender: FDA-Public Use
  Company Number: DE-JNJFOC-20120412514

PATIENT
  Sex: Male
  Weight: 85 kg

DRUGS (8)
  1. METOPROLOL TARTRATE [Concomitant]
     Indication: HYPERTENSION
     Dosage: DOSE ERPORTED AS 55/12.5 MG
     Route: 048
  2. RAMIPRIL [Concomitant]
     Indication: HYPERTENSION
     Route: 048
  3. TAMSULOSIN HCL [Concomitant]
     Indication: BENIGN PROSTATIC HYPERPLASIA
     Route: 048
  4. PENTAERITHRITYL TETRANITRATE [Concomitant]
     Indication: CARDIOVASCULAR DISORDER
     Route: 048
  5. AMARYL [Concomitant]
     Indication: DIABETES MELLITUS
     Route: 048
  6. REMICADE [Suspect]
     Indication: COLITIS ULCERATIVE
     Dosage: DOSE REPORTED AS ^400^
     Route: 042
     Dates: start: 20100608
  7. SIMVASTATIN [Concomitant]
     Indication: HYPERCHOLESTEROLAEMIA
     Route: 048
  8. MESALAMINE [Concomitant]
     Route: 048

REACTIONS (1)
  - BURSITIS [None]
